FAERS Safety Report 5568944-5 (Version None)
Quarter: 2007Q4

REPORT INFORMATION
  Report Type: 
  Country: None (occurrence: None)
  Receive Date: 20071220
  Receipt Date: 20070703
  Transmission Date: 20080405
  Serious: No
  Sender: FDA-Public Use
  Company Number: A0645213A

PATIENT
  Age: 67 Year
  Sex: Male

DRUGS (8)
  1. AVODART [Suspect]
     Dosage: .5MG ALTERNATE DAYS
     Route: 048
     Dates: start: 20040101
  2. XANAX [Concomitant]
  3. PAXIL [Concomitant]
  4. RYTHMOL [Concomitant]
  5. NEXIUM [Concomitant]
  6. PEPCID [Concomitant]
  7. ZELNORM [Concomitant]
  8. AMBIEN [Concomitant]

REACTIONS (7)
  - ABDOMINAL PAIN UPPER [None]
  - BREAST CYST [None]
  - BREAST ENLARGEMENT [None]
  - GASTROOESOPHAGEAL REFLUX DISEASE [None]
  - STOMACH DISCOMFORT [None]
  - THERAPEUTIC RESPONSE UNEXPECTED [None]
  - WEIGHT DECREASED [None]
